FAERS Safety Report 4780270-0 (Version None)
Quarter: 2005Q3

REPORT INFORMATION
  Report Type: 
  Country: None (occurrence: None)
  Receive Date: 20050927
  Receipt Date: 20050916
  Transmission Date: 20060218
  Serious: Yes (Hospitalization)
  Sender: FDA-Public Use
  Company Number: CH-ROCHE-418095

PATIENT
  Age: 62 Year
  Sex: Male

DRUGS (9)
  1. TORSEMIDE [Suspect]
     Indication: LOCALISED OEDEMA
     Route: 048
     Dates: start: 20050818, end: 20050822
  2. PLAVIX [Concomitant]
     Route: 048
     Dates: start: 20050601
  3. LEXOTANIL [Concomitant]
     Dosage: LONG TERM USE.
     Route: 048
  4. ASPIRIN [Concomitant]
     Dosage: LONG TERM USE.
     Route: 048
  5. COZAAR [Concomitant]
     Indication: ESSENTIAL HYPERTENSION
     Dosage: LONG TERM USE.
     Route: 048
  6. IMODIUM [Concomitant]
     Dosage: LONG TERM USE.
     Route: 048
  7. ZANTAC [Concomitant]
     Dosage: LONG TERM USE.
     Route: 048
  8. KINIDIN [Concomitant]
     Dosage: LONG TERM USE.
     Route: 048
  9. NITROGLYCERIN [Concomitant]
     Dosage: LONG TERM USE.
     Route: 048

REACTIONS (4)
  - DERMATITIS BULLOUS [None]
  - ERYTHEMA [None]
  - SKIN LESION [None]
  - SOMNOLENCE [None]
